FAERS Safety Report 6741164-4 (Version None)
Quarter: 2010Q2

REPORT INFORMATION
  Report Type: 
  Country: None (occurrence: None)
  Receive Date: 20100526
  Receipt Date: 20100517
  Transmission Date: 20101027
  Serious: Yes (Life-Threatening, Other)
  Sender: FDA-Public Use
  Company Number: IN-BRISTOL-MYERS SQUIBB COMPANY-15107980

PATIENT
  Age: 4 Year
  Sex: Male
  Weight: 14 kg

DRUGS (5)
  1. VINCRISTINE SULFATE [Interacting]
     Indication: ACUTE LYMPHOCYTIC LEUKAEMIA
  2. AMPHOTERICIN B [Suspect]
     Indication: MUCORMYCOSIS
  3. POSACONAZOLE [Interacting]
     Indication: PROPHYLAXIS
  4. ASPARAGINASE [Suspect]
     Indication: ACUTE LYMPHOCYTIC LEUKAEMIA
  5. PREDNISOLONE [Suspect]
     Indication: ACUTE LYMPHOCYTIC LEUKAEMIA

REACTIONS (4)
  - CONVULSION [None]
  - DRUG INTERACTION [None]
  - INAPPROPRIATE ANTIDIURETIC HORMONE SECRETION [None]
  - MUCORMYCOSIS [None]
